FAERS Safety Report 14696592 (Version 1)
Quarter: 2018Q1

REPORT INFORMATION
  Report Type: Spontaneous
  Country: US (occurrence: US)
  Receive Date: 20180330
  Receipt Date: 20180330
  Transmission Date: 20180509
  Serious: No
  Sender: FDA-Public Use
  Company Number: US-SA-2017SA057036

PATIENT

DRUGS (4)
  1. CLARITIN [Suspect]
     Active Substance: LORATADINE
     Route: 065
  2. ALLEGRA ALLERGY [Suspect]
     Active Substance: FEXOFENADINE HYDROCHLORIDE
     Route: 048
  3. SUDAFED [Suspect]
     Active Substance: PSEUDOEPHEDRINE HYDROCHLORIDE
     Route: 065
  4. FLONASE [Suspect]
     Active Substance: FLUTICASONE PROPIONATE
     Route: 065

REACTIONS (2)
  - Dyspnoea [Unknown]
  - Sneezing [Unknown]
